FAERS Safety Report 23880741 (Version 1)
Quarter: 2024Q2

REPORT INFORMATION
  Report Type: Spontaneous
  Country: EE (occurrence: EE)
  Receive Date: 20240521
  Receipt Date: 20240521
  Transmission Date: 20240716
  Serious: Yes (Hospitalization, Other)
  Sender: FDA-Public Use
  Company Number: EE-SA-SAC20240517001154

PATIENT
  Age: 16 Year
  Sex: Male

DRUGS (1)
  1. DUPILUMAB [Suspect]
     Active Substance: DUPILUMAB
     Indication: Dermatitis atopic
     Dosage: 300 MG, QOW
     Route: 058
     Dates: start: 20200813, end: 2020

REACTIONS (7)
  - Pleurisy [Unknown]
  - Borrelia infection [Unknown]
  - Intercostal neuralgia [Unknown]
  - Chest pain [Recovering/Resolving]
  - Pleural effusion [Recovered/Resolved]
  - Eosinophilia [Unknown]
  - Arthralgia [Unknown]

NARRATIVE: CASE EVENT DATE: 20200101
